FAERS Safety Report 21492815 (Version 1)
Quarter: 2022Q4

REPORT INFORMATION
  Report Type: Spontaneous
  Country: US (occurrence: None)
  Receive Date: 20221020
  Receipt Date: 20221020
  Transmission Date: 20230112
  Serious: Yes (Hospitalization, Other)
  Sender: FDA-Public Use
  Company Number: None

PATIENT
  Age: 68 Year
  Sex: Female
  Weight: 54 kg

DRUGS (10)
  1. ZOMETA [Suspect]
     Active Substance: ZOLEDRONIC ACID
     Indication: Metastases to bone
     Dosage: FREQUENCY : MONTHLY;?
     Dates: start: 20160612, end: 20220612
  2. XGEVA [Suspect]
     Active Substance: DENOSUMAB
     Indication: Metastases to bone
     Dosage: FREQUENCY : MONTHLY;?
     Route: 030
     Dates: start: 20200612, end: 20220612
  3. PIQRAY [Concomitant]
     Active Substance: ALPELISIB
  4. FULVESTRANT [Concomitant]
     Active Substance: FULVESTRANT
  5. TRENTAL [Concomitant]
     Active Substance: PENTOXIFYLLINE
  6. SIMVASTATIN [Concomitant]
     Active Substance: SIMVASTATIN
  7. VITAMIN E [Concomitant]
     Active Substance: .ALPHA.-TOCOPHEROL
  8. VITAMIN D [Concomitant]
     Active Substance: VITAMIN D NOS
  9. fish oi [Concomitant]
  10. COENZYME Q10 [Concomitant]
     Active Substance: DIETARY SUPPLEMENT\UBIDECARENONE

REACTIONS (2)
  - Osteonecrosis of jaw [None]
  - Localised infection [None]

NARRATIVE: CASE EVENT DATE: 20220301
